FAERS Safety Report 6314150-6 (Version None)
Quarter: 2009Q3

REPORT INFORMATION
  Report Type: 
  Country: None (occurrence: None)
  Receive Date: 20090818
  Receipt Date: 20090812
  Transmission Date: 20100115
  Serious: Yes (Hospitalization)
  Sender: FDA-Public Use
  Company Number: PHHY2009AT34152

PATIENT
  Sex: Female
  Weight: 70 kg

DRUGS (3)
  1. LESCOL [Suspect]
     Dosage: 1 DF (80 MG) DAILY
     Route: 048
  2. MARCUMAR [Suspect]
     Indication: INTERNATIONAL NORMALISED RATIO
  3. TEVETEN [Concomitant]
     Dosage: 1 DF DAILY
     Route: 048

REACTIONS (3)
  - HAEMATURIA [None]
  - HAEMOGLOBIN DECREASED [None]
  - HEPATITIS [None]
